FAERS Safety Report 19933572 (Version 1)
Quarter: 2021Q4

REPORT INFORMATION
  Report Type: Spontaneous
  Country: US (occurrence: US)
  Receive Date: 20211007
  Receipt Date: 20211007
  Transmission Date: 20220303
  Serious: No
  Sender: FDA-Public Use
  Company Number: None

PATIENT

DRUGS (1)
  1. BACLOFEN [Suspect]
     Active Substance: BACLOFEN

REACTIONS (6)
  - Withdrawal syndrome [None]
  - Product dispensing error [None]
  - Incorrect dose administered [None]
  - Product communication issue [None]
  - Transcription medication error [None]
  - Lethargy [None]
